FAERS Safety Report 10067722 (Version 1)
Quarter: 2014Q2

REPORT INFORMATION
  Report Type: Spontaneous
  Country: US (occurrence: None)
  Receive Date: 20140408
  Receipt Date: 20140408
  Transmission Date: 20141212
  Serious: Yes (Hospitalization)
  Sender: FDA-Public Use
  Company Number: None

PATIENT
  Age: 61 Year
  Sex: Male
  Weight: 84.3 kg

DRUGS (2)
  1. 5-FLUOROURACIL (5-FU) [Suspect]
  2. OXALIPLATIN [Suspect]

REACTIONS (10)
  - Nausea [None]
  - Vomiting [None]
  - Dysgeusia [None]
  - Dysphagia [None]
  - Cholelithiasis [None]
  - Aphagia [None]
  - Device dislocation [None]
  - Device occlusion [None]
  - Biliary colic [None]
  - Gallbladder disorder [None]
